FAERS Safety Report 6202639-X (Version None)
Quarter: 2009Q2

REPORT INFORMATION
  Report Type: 
  Country: None (occurrence: None)
  Receive Date: 20090526
  Receipt Date: 20090515
  Transmission Date: 20091009
  Serious: Yes (Death)
  Sender: FDA-Public Use
  Company Number: DE-ELI_LILLY_AND_COMPANY-DE200905003162

PATIENT
  Sex: Male

DRUGS (5)
  1. ARICLAIM [Suspect]
     Indication: DIABETIC NEUROPATHY
  2. ISICOM [Interacting]
     Indication: PARKINSON'S DISEASE
     Dosage: UNK, UNKNOWN
     Route: 065
  3. LEVODOPA [Interacting]
     Indication: PARKINSON'S DISEASE
     Dosage: UNK, UNKNOWN
     Route: 065
  4. CARBIDOPA [Interacting]
     Indication: PARKINSON'S DISEASE
     Dosage: UNK, UNKNOWN
     Route: 065
  5. DOPADURA C [Interacting]
     Indication: PARKINSON'S DISEASE
     Dosage: 100 D/F, EACH EVENING
     Route: 065

REACTIONS (2)
  - DEATH [None]
  - DRUG INTERACTION [None]
